FAERS Safety Report 5867939-1 (Version None)
Quarter: 2008Q3

REPORT INFORMATION
  Report Type: 
  Country: None (occurrence: None)
  Receive Date: 20080902
  Receipt Date: 20080828
  Transmission Date: 20090109
  Serious: Yes (Hospitalization)
  Sender: FDA-Public Use
  Company Number: AU-BOEHRINGER INGELHEIM GMBH, GERMANY-2008-BP-13433AU

PATIENT
  Sex: Male

DRUGS (1)
  1. SIFROL [Suspect]
     Indication: PARKINSON'S DISEASE
     Route: 048

REACTIONS (4)
  - BINGE EATING [None]
  - BLOOD PRESSURE DECREASED [None]
  - HALLUCINATION [None]
  - HYPERSOMNIA [None]
